FAERS Safety Report 16740583 (Version 2)
Quarter: 2019Q3

REPORT INFORMATION
  Report Type: Spontaneous
  Country: US (occurrence: US)
  Receive Date: 20190826
  Receipt Date: 20190827
  Transmission Date: 20191005
  Serious: Yes (Other)
  Sender: FDA-Public Use
  Company Number: US-PFIZER INC-2019361144

PATIENT
  Age: 77 Year
  Sex: Female
  Weight: 67.57 kg

DRUGS (1)
  1. IBRANCE [Suspect]
     Active Substance: PALBOCICLIB
     Indication: BREAST CANCER FEMALE
     Dosage: 125 MG, CYCLIC (125 MG DAILY FOR DAYS 1-21, THEN OFF FOR SEVEN DAYS)
     Route: 048
     Dates: start: 20180102

REACTIONS (1)
  - Lacrimation increased [Not Recovered/Not Resolved]

NARRATIVE: CASE EVENT DATE: 20190820
